FAERS Safety Report 12590164 (Version 2)
Quarter: 2016Q3

REPORT INFORMATION
  Report Type: Spontaneous
  Country: US (occurrence: US)
  Receive Date: 20160725
  Receipt Date: 20160927
  Transmission Date: 20161109
  Serious: Yes (Hospitalization, Other)
  Sender: FDA-Public Use
  Company Number: US-GLAXOSMITHKLINE-US2016106816

PATIENT
  Sex: Female
  Weight: 71.2 kg

DRUGS (1)
  1. ADVAIR DISKUS [Suspect]
     Active Substance: FLUTICASONE PROPIONATE\SALMETEROL XINAFOATE
     Indication: CHRONIC OBSTRUCTIVE PULMONARY DISEASE
     Dosage: UNK
     Dates: start: 2001

REACTIONS (9)
  - Amnesia [Unknown]
  - Dyspnoea [Unknown]
  - Vertebroplasty [Unknown]
  - Myocardial infarction [Unknown]
  - Spinal fracture [Unknown]
  - Head injury [Unknown]
  - Upper limb fracture [Unknown]
  - Internal fixation of fracture [Unknown]
  - Fall [Unknown]

NARRATIVE: CASE EVENT DATE: 2013
